FAERS Safety Report 25435720 (Version 1)
Quarter: 2025Q2

REPORT INFORMATION
  Report Type: Report from Study
  Country: IN (occurrence: IN)
  Receive Date: 20250613
  Receipt Date: 20250613
  Transmission Date: 20250716
  Serious: Yes (Hospitalization)
  Sender: DAIICHI
  Company Number: IN-ASTRAZENECA-202506IND002812IN

PATIENT
  Sex: Female

DRUGS (1)
  1. ENHERTU [Suspect]
     Active Substance: FAM-TRASTUZUMAB DERUXTECAN-NXKI
     Indication: HER2 low breast cancer
     Dosage: 200 MILLIGRAM, Q3W
     Route: 042

REACTIONS (6)
  - Pulmonary oedema [Unknown]
  - Blood pressure decreased [Unknown]
  - Pyrexia [Unknown]
  - Asthenia [Unknown]
  - Cough [Unknown]
  - Asthenia [Unknown]
